FAERS Safety Report 20576742 (Version 1)
Quarter: 2022Q1

REPORT INFORMATION
  Report Type: Report from Study
  Country: ES (occurrence: ES)
  Receive Date: 20220310
  Receipt Date: 20220310
  Transmission Date: 20220423
  Serious: Yes (Other)
  Sender: FDA-Public Use
  Company Number: ES-JNJFOC-20220304099

PATIENT
  Age: 72 Year
  Sex: Female

DRUGS (3)
  1. BORTEZOMIB [Suspect]
     Active Substance: BORTEZOMIB
     Indication: Plasma cell myeloma
     Dosage: 1.7 MILLIGRAM
     Route: 065
     Dates: start: 20210517, end: 20211213
  2. BORTEZOMIB [Suspect]
     Active Substance: BORTEZOMIB
     Dosage: 1.3 MILLIGRAM
     Route: 065
     Dates: start: 20210517, end: 20211213
  3. BORTEZOMIB [Suspect]
     Active Substance: BORTEZOMIB
     Dosage: 1.2 MILLIGRAM
     Route: 065
     Dates: start: 20210517, end: 20211213

REACTIONS (3)
  - Diabetes mellitus [Not Recovered/Not Resolved]
  - Hyperglycaemia [Recovered/Resolved]
  - Neuralgia [Recovered/Resolved]

NARRATIVE: CASE EVENT DATE: 20210913
